FAERS Safety Report 19950480 (Version 1)
Quarter: 2021Q4

REPORT INFORMATION
  Report Type: Report from Study
  Country: FR (occurrence: FR)
  Receive Date: 20211013
  Receipt Date: 20211013
  Transmission Date: 20220303
  Serious: Yes (Life-Threatening, Other)
  Sender: FDA-Public Use
  Company Number: FR-SUN PHARMACEUTICAL INDUSTRIES LTD-2021R1-313921

PATIENT
  Age: 57 Year
  Sex: Female

DRUGS (1)
  1. TECHNETIUM TC-99M DISOFENIN [Suspect]
     Active Substance: TECHNETIUM TC-99M DISOFENIN
     Indication: Scan thyroid gland
     Dosage: UNK
     Route: 065

REACTIONS (3)
  - Hypersensitivity [Unknown]
  - Hypotension [Unknown]
  - Vomiting [Unknown]
